FAERS Safety Report 21944301 (Version 1)
Quarter: 2023Q1

REPORT INFORMATION
  Report Type: Spontaneous
  Country: US (occurrence: None)
  Receive Date: 20230201
  Receipt Date: 20230201
  Transmission Date: 20230418
  Serious: Yes (Other)
  Sender: FDA-Public Use
  Company Number: None

PATIENT
  Sex: Female

DRUGS (3)
  1. BOTOX [Suspect]
     Active Substance: ONABOTULINUMTOXINA
     Indication: Migraine
     Dosage: OTHER QUANTITY : 200 UNIT;?OTHER FREQUENCY : EVERY 12 WEEKS;?
     Route: 058
     Dates: start: 20180815
  2. BOTOX [Suspect]
     Active Substance: ONABOTULINUMTOXINA
     Dosage: OTHER QUANTITY : 200 UNITS;?OTHER FREQUENCY : EVERY 12 WEEKS;?
     Route: 030
  3. SYNTHROID [Concomitant]
     Active Substance: LEVOTHYROXINE SODIUM

REACTIONS (2)
  - Oophorectomy [None]
  - Salpingectomy [None]
